FAERS Safety Report 12990618 (Version 2)
Quarter: 2016Q4

REPORT INFORMATION
  Report Type: Spontaneous
  Country: PL (occurrence: PL)
  Receive Date: 20161201
  Receipt Date: 20161212
  Transmission Date: 20170207
  Serious: Yes (Hospitalization, Other)
  Sender: FDA-Public Use
  Company Number: PL-MYLANLABS-2016M1051986

PATIENT

DRUGS (1)
  1. ERLOTINIB [Suspect]
     Active Substance: ERLOTINIB
     Indication: NON-SMALL CELL LUNG CANCER
     Dosage: UNK
     Route: 065

REACTIONS (8)
  - Trichomegaly [Unknown]
  - Skin lesion [Unknown]
  - Dry skin [Unknown]
  - Alopecia scarring [Unknown]
  - Rash pustular [Unknown]
  - Paronychia [Unknown]
  - Pruritus [Unknown]
  - Infection [Unknown]
